FAERS Safety Report 16661365 (Version 6)
Quarter: 2019Q3

REPORT INFORMATION
  Report Type: Spontaneous
  Country: PR (occurrence: PR)
  Receive Date: 20190802
  Receipt Date: 20190919
  Transmission Date: 20191004
  Serious: Yes (Other)
  Sender: FDA-Public Use
  Company Number: PR-PFIZER INC-2019329276

PATIENT
  Age: 84 Year
  Sex: Female
  Weight: 45.35 kg

DRUGS (4)
  1. IBRANCE [Suspect]
     Active Substance: PALBOCICLIB
     Dosage: 125 MG, CYCLIC (1 CAPSULE DAILY FOR 21 DAYS ON AND 7 DAYS OFF)
     Route: 048
     Dates: end: 2019
  2. IBRANCE [Suspect]
     Active Substance: PALBOCICLIB
     Dosage: 100 MG CYCLIC (1 CAPSULE DAILY ON 21 DAYS AND OFF 7 DAYS)
     Route: 048
     Dates: start: 20190829
  3. IBRANCE [Suspect]
     Active Substance: PALBOCICLIB
     Indication: BREAST CANCER FEMALE
     Dosage: 125 MG, CYCLIC (1 CAPSULE DAILY FOR 21 DAYS ON AND 7 DAYS OFF)
     Route: 048
     Dates: start: 20190722
  4. IBRANCE [Suspect]
     Active Substance: PALBOCICLIB
     Dosage: 100 MG, CYCLIC(1 CAPSULE DAILY ON 21 DAYS AND OFF 7 DAYS )
     Route: 048
     Dates: start: 20190722, end: 2019

REACTIONS (7)
  - Neoplasm progression [Unknown]
  - Pruritus [Unknown]
  - Decreased immune responsiveness [Unknown]
  - Pulmonary mass [Unknown]
  - Pain in extremity [Unknown]
  - Pleural effusion [Unknown]
  - Influenza [Unknown]

NARRATIVE: CASE EVENT DATE: 20190729
